FAERS Safety Report 14403746 (Version 2)
Quarter: 2018Q1

REPORT INFORMATION
  Report Type: Report from Study
  Country: IT (occurrence: IT)
  Receive Date: 20180117
  Receipt Date: 20180302
  Transmission Date: 20180509
  Serious: Yes (Death, Other)
  Sender: FDA-Public Use
  Company Number: IT-JAZZ-2018-IT-000271

PATIENT
  Age: 33 Year
  Sex: Male

DRUGS (1)
  1. DEFITELIO [Suspect]
     Active Substance: DEFIBROTIDE SODIUM
     Indication: VENOOCCLUSIVE DISEASE
     Dosage: 3 MG/KG, QD
     Dates: start: 20171127, end: 20171218

REACTIONS (3)
  - Inappropriate schedule of drug administration [Unknown]
  - Death [Fatal]
  - Incorrect dosage administered [Unknown]
